FAERS Safety Report 10765927 (Version 1)
Quarter: 2015Q1

REPORT INFORMATION
  Report Type: Spontaneous
  Country: US (occurrence: None)
  Receive Date: 20150204
  Receipt Date: 20150204
  Transmission Date: 20150721
  Serious: Yes (Life-Threatening)
  Sender: FDA-Public Use
  Company Number: None

PATIENT
  Age: 40 Year
  Sex: Male
  Weight: 86.18 kg

DRUGS (1)
  1. LITHIUM [Suspect]
     Active Substance: LITHIUM CARBONATE
     Indication: BIPOLAR I DISORDER
     Route: 048
     Dates: start: 20141229, end: 20150129

REACTIONS (6)
  - Toxicity to various agents [None]
  - Incorrect dose administered [None]
  - Drug dispensing error [None]
  - Fatigue [None]
  - Tremor [None]
  - Thirst [None]

NARRATIVE: CASE EVENT DATE: 20141229
